FAERS Safety Report 11740392 (Version 2)
Quarter: 2015Q4

REPORT INFORMATION
  Report Type: Spontaneous
  Country: US (occurrence: US)
  Receive Date: 20151110
  Receipt Date: 20151120
  Transmission Date: 20160304
  Serious: No
  Sender: FDA-Public Use
  Company Number: US-ELI_LILLY_AND_COMPANY-US201204002488

PATIENT
  Sex: Female

DRUGS (4)
  1. FORTEO [Suspect]
     Active Substance: TERIPARATIDE
     Indication: OSTEOPOROSIS
     Dosage: 20 UG, QD
     Route: 065
     Dates: start: 201201
  2. FORTEO [Suspect]
     Active Substance: TERIPARATIDE
     Dosage: 20 UG, QOD
     Route: 065
     Dates: start: 20120705
  3. FORTEO [Suspect]
     Active Substance: TERIPARATIDE
     Dosage: 20 UG, QOD
     Route: 065
     Dates: start: 20120705
  4. FORTEO [Suspect]
     Active Substance: TERIPARATIDE
     Dosage: 20 UG, QD
     Route: 065
     Dates: end: 201206

REACTIONS (12)
  - Feeling abnormal [Unknown]
  - Flatulence [Not Recovered/Not Resolved]
  - Dysphonia [Recovering/Resolving]
  - Hyperhidrosis [Recovering/Resolving]
  - Depression [Recovering/Resolving]
  - Bone pain [Recovering/Resolving]
  - Myalgia [Recovering/Resolving]
  - Hypothyroidism [Unknown]
  - Insomnia [Not Recovered/Not Resolved]
  - Injection site swelling [Recovered/Resolved]
  - Abdominal distension [Recovering/Resolving]
  - Constipation [Unknown]
